FAERS Safety Report 7213270-1 (Version None)
Quarter: 2010Q4

REPORT INFORMATION
  Report Type: 
  Country: None (occurrence: None)
  Receive Date: 20101229
  Receipt Date: 20101214
  Transmission Date: 20110411
  Serious: Yes (Disabling, Other)
  Sender: FDA-Public Use
  Company Number: 2010005014

PATIENT
  Age: 72 Year
  Sex: Female

DRUGS (6)
  1. TARCEVA [Suspect]
     Indication: LUNG ADENOCARCINOMA
     Dosage: (150 MG,QD),ORAL
     Route: 048
     Dates: start: 20071101
  2. METOHEXAL (METOPROLOL TARTRATE) [Concomitant]
  3. ENALAPRIL MALEATE [Concomitant]
  4. OMEP (OMEPRAZOLE) [Concomitant]
  5. LYRICA [Concomitant]
  6. AMILORIDE HYDROCHLORIDE [Concomitant]

REACTIONS (2)
  - EYE INFLAMMATION [None]
  - VISUAL ACUITY REDUCED [None]
